FAERS Safety Report 6113172-8 (Version None)
Quarter: 2009Q1

REPORT INFORMATION
  Report Type: 
  Country: None (occurrence: None)
  Receive Date: 20090312
  Receipt Date: 20090304
  Transmission Date: 20090719
  Serious: Yes (Other)
  Sender: FDA-Public Use
  Company Number: ES-PFIZER INC-2009178352

PATIENT

DRUGS (10)
  1. DIFLUCAN [Suspect]
     Indication: BRONCHITIS FUNGAL
     Dosage: UNK
     Route: 042
     Dates: start: 20081118, end: 20081128
  2. MEROPENEM [Concomitant]
     Dosage: UNK
     Route: 042
     Dates: start: 20081116, end: 20081118
  3. PANTOPRAZOL [Concomitant]
     Route: 042
     Dates: start: 20081110
  4. PHENYTOIN [Concomitant]
     Route: 042
     Dates: start: 20081110
  5. CLOXACILLIN [Concomitant]
     Dosage: UNK
     Route: 042
     Dates: start: 20081110, end: 20081115
  6. LINEZOLID [Concomitant]
     Dosage: UNK
     Route: 042
     Dates: start: 20081116, end: 20081118
  7. DIPRIVAN [Concomitant]
     Dates: start: 20081110
  8. METRONIDAZOLE [Concomitant]
     Dosage: UNK
     Route: 042
     Dates: start: 20081110, end: 20081115
  9. FORTAM [Concomitant]
     Dosage: UNK
     Route: 042
     Dates: start: 20081110, end: 20081115
  10. ULTIVA [Concomitant]
     Dates: start: 20081110

REACTIONS (1)
  - CYTOLYTIC HEPATITIS [None]
